FAERS Safety Report 5932408-7 (Version None)
Quarter: 2008Q4

REPORT INFORMATION
  Report Type: 
  Country: None (occurrence: None)
  Receive Date: 20081027
  Receipt Date: 20081027
  Transmission Date: 20090506
  Serious: Yes (Death)
  Sender: FDA-Public Use
  Company Number: None

PATIENT
  Age: 40 Year
  Sex: Female
  Weight: 56.6996 kg

DRUGS (1)
  1. ENBREL [Suspect]

REACTIONS (3)
  - BONE NEOPLASM MALIGNANT [None]
  - BREAST CANCER FEMALE [None]
  - HEPATIC NEOPLASM MALIGNANT [None]
